FAERS Safety Report 13974009 (Version 2)
Quarter: 2018Q4

REPORT INFORMATION
  Report Type: Spontaneous
  Country: US (occurrence: US)
  Receive Date: 20170915
  Receipt Date: 20181010
  Transmission Date: 20190204
  Serious: Yes (Other)
  Sender: FDA-Public Use
  Company Number: PHEH2017US029492

PATIENT
  Age: 44 Year
  Sex: Male

DRUGS (1)
  1. ENTRESTO [Suspect]
     Active Substance: SACUBITRIL\VALSARTAN
     Indication: CARDIAC FAILURE
     Dosage: 100 MG, BID
     Route: 048
     Dates: start: 20170904, end: 20170904

REACTIONS (4)
  - Angioedema [Recovered/Resolved]
  - Swelling face [Unknown]
  - Contraindicated product administered [Unknown]
  - Lip swelling [Unknown]

NARRATIVE: CASE EVENT DATE: 20170904
